FAERS Safety Report 24567758 (Version 2)
Quarter: 2024Q4

REPORT INFORMATION
  Report Type: Report from Study
  Country: SG (occurrence: SG)
  Receive Date: 20241031
  Receipt Date: 20241108
  Transmission Date: 20250115
  Serious: No
  Sender: NOVARTIS
  Company Number: SG-002147023-NVSC2024SG209159

PATIENT
  Age: 35 Year
  Sex: Female

DRUGS (3)
  1. LEQVIO [Suspect]
     Active Substance: INCLISIRAN SODIUM
     Indication: Arteriosclerosis
     Dosage: UNK, 6 MONTHS
     Route: 065
     Dates: start: 202311
  2. LEQVIO [Suspect]
     Active Substance: INCLISIRAN SODIUM
     Dosage: UNK, 6 MONTHS
     Route: 065
     Dates: start: 202402
  3. LEQVIO [Suspect]
     Active Substance: INCLISIRAN SODIUM
     Dosage: UNK, 6 MONTHS
     Route: 065
     Dates: start: 202405

REACTIONS (2)
  - Dizziness [Recovering/Resolving]
  - Somnolence [Recovering/Resolving]
